FAERS Safety Report 4611191-1 (Version None)
Quarter: 2005Q1

REPORT INFORMATION
  Report Type: 
  Country: None (occurrence: None)
  Receive Date: 20050314
  Receipt Date: 20040427
  Transmission Date: 20050727
  Serious: Yes (Hospitalization)
  Sender: FDA-Public Use
  Company Number: USA040466041

PATIENT
  Age: 80 Year
  Sex: Female

DRUGS (1)
  1. GEMZAR [Suspect]
     Indication: LUNG NEOPLASM MALIGNANT

REACTIONS (2)
  - GASTROOESOPHAGEAL REFLUX DISEASE [None]
  - PULMONARY OEDEMA [None]
